FAERS Safety Report 8125140-5 (Version None)
Quarter: 2012Q1

REPORT INFORMATION
  Report Type: 
  Country: None (occurrence: None)
  Receive Date: 20120209
  Receipt Date: 20120201
  Transmission Date: 20120608
  Serious: Yes (Death, Other)
  Sender: FDA-Public Use
  Company Number: FR-TEVA-321626ISR

PATIENT
  Sex: Female

DRUGS (10)
  1. RABEPRAZOLE SODIUM [Suspect]
     Route: 048
  2. PREVISCAN [Suspect]
     Route: 048
  3. RITUXIMAB [Suspect]
     Route: 042
     Dates: start: 20050101, end: 20100501
  4. OMEPRAZOLE [Suspect]
  5. STABLON [Suspect]
     Route: 048
  6. GRANOCYTE [Suspect]
     Route: 030
     Dates: start: 20110101
  7. RAMIPRIL [Suspect]
     Route: 048
  8. FOLIC ACID [Suspect]
     Route: 048
  9. CORDARONE [Suspect]
     Route: 048
  10. LEVACT [Suspect]
     Route: 042
     Dates: start: 20100105

REACTIONS (3)
  - GUILLAIN-BARRE SYNDROME [None]
  - BULBAR PALSY [None]
  - RESPIRATORY FAILURE [None]
